FAERS Safety Report 5146521-8 (Version None)
Quarter: 2006Q4

REPORT INFORMATION
  Report Type: 
  Country: None (occurrence: None)
  Receive Date: 20061109
  Receipt Date: 20061030
  Transmission Date: 20070319
  Serious: Yes (Other)
  Sender: FDA-Public Use
  Company Number: US-JNJFOC-20061100662

PATIENT
  Sex: Female

DRUGS (4)
  1. FENTANYL TRANSDERMAL SYSTEM [Suspect]
     Route: 062
  2. FENTANYL TRANSDERMAL SYSTEM [Suspect]
     Indication: PAIN
     Route: 062
  3. PERCOCET [Concomitant]
     Indication: PAIN
     Route: 048
  4. RELAFEN [Concomitant]
     Indication: PAIN
     Route: 048

REACTIONS (12)
  - AGITATION [None]
  - ANGER [None]
  - BLOOD GLUCOSE DECREASED [None]
  - CONFUSIONAL STATE [None]
  - CYSTITIS [None]
  - FATIGUE [None]
  - HEADACHE [None]
  - ILL-DEFINED DISORDER [None]
  - NAUSEA [None]
  - NERVOUSNESS [None]
  - PARANOIA [None]
  - SYNCOPE [None]
